FAERS Safety Report 4776322-1 (Version None)
Quarter: 2005Q3

REPORT INFORMATION
  Report Type: 
  Country: None (occurrence: None)
  Receive Date: 20050921
  Receipt Date: 20050908
  Transmission Date: 20060218
  Serious: Yes (Other)
  Sender: FDA-Public Use
  Company Number: 2005125438

PATIENT
  Age: 64 Year
  Sex: Male

DRUGS (1)
  1. ESTRACYT (ESTRAMUSTINE PHOSPHATE SODIUM) [Suspect]
     Indication: PROSTATE CANCER
     Dosage: 560 MG (280 MG, 2 IN 1 D), ORAL
     Route: 048
     Dates: start: 20050101

REACTIONS (5)
  - BLISTER [None]
  - CARDIAC DISORDER [None]
  - PEMPHIGUS [None]
  - PORPHYRIA [None]
  - TRANSAMINASES INCREASED [None]
